FAERS Safety Report 8849002 (Version 1)
Quarter: 2012Q4

REPORT INFORMATION
  Report Type: 
  Country: ES (occurrence: ES)
  Receive Date: 20121019
  Receipt Date: 20121019
  Transmission Date: 20130627
  Serious: Yes (Life-Threatening)
  Sender: FDA-Public Use
  Company Number: ES-ELI_LILLY_AND_COMPANY-ES201210002544

PATIENT
  Age: 44 Year
  Sex: Female
  Weight: 89 kg

DRUGS (5)
  1. XERISTAR [Suspect]
     Indication: DEPRESSION
     Dosage: 60 mg, qd
     Route: 048
     Dates: start: 20090722, end: 201106
  2. XERISTAR [Interacting]
     Dosage: 30 mg, qd
     Route: 048
     Dates: start: 201106
  3. TAMOXIFEN [Interacting]
     Indication: BREAST CANCER IN SITU
     Dosage: UNK, unknown
     Route: 048
     Dates: start: 200712, end: 201004
  4. ZOLADEX [Concomitant]
     Dosage: 10.8 mg, UNK
     Dates: start: 200712
  5. ARIMIDEX [Concomitant]
     Dosage: 1 mg, UNK
     Dates: start: 201004

REACTIONS (4)
  - Metastases to bone [Not Recovered/Not Resolved]
  - Neoplasm progression [Not Recovered/Not Resolved]
  - Metastases to liver [Not Recovered/Not Resolved]
  - Drug interaction [Recovered/Resolved]
